FAERS Safety Report 6680299-1 (Version None)
Quarter: 2010Q2

REPORT INFORMATION
  Report Type: 
  Country: None (occurrence: None)
  Receive Date: 20100409
  Receipt Date: 20100330
  Transmission Date: 20101027
  Serious: Yes (Hospitalization)
  Sender: FDA-Public Use
  Company Number: 552741

PATIENT
  Age: 41 Year
  Sex: Female

DRUGS (5)
  1. CYTARABINE [Suspect]
     Indication: CHRONIC MYELOID LEUKAEMIA
  2. FLUDARABINE PHOSPHATE [Suspect]
     Indication: CHRONIC MYELOID LEUKAEMIA
  3. (DASATINIB) [Suspect]
     Indication: CHRONIC MYELOID LEUKAEMIA
     Dosage: 140 MG,
     Dates: start: 20100111
  4. (G-CSF) [Suspect]
     Indication: CHRONIC MYELOID LEUKAEMIA
  5. (IDARUBICIN) [Suspect]
     Indication: CHRONIC MYELOID LEUKAEMIA

REACTIONS (9)
  - BACTERIAL INFECTION [None]
  - BRONCHIOLITIS [None]
  - FEBRILE NEUTROPENIA [None]
  - FUNGAL INFECTION [None]
  - LUNG NEOPLASM [None]
  - PNEUMONITIS [None]
  - PULMONARY MASS [None]
  - RASH [None]
  - VIRAL INFECTION [None]
